FAERS Safety Report 6419437-4 (Version None)
Quarter: 2009Q4

REPORT INFORMATION
  Report Type: 
  Country: None (occurrence: None)
  Receive Date: 20091029
  Receipt Date: 20091021
  Transmission Date: 20100525
  Serious: Yes (Hospitalization)
  Sender: FDA-Public Use
  Company Number: JP-ASTRAZENECA-2009SE22929

PATIENT
  Age: 65 Year
  Sex: Male
  Weight: 64 kg

DRUGS (9)
  1. BLOPRESS [Suspect]
     Indication: HYPERTENSION
     Route: 048
     Dates: start: 20060822
  2. BLOPRESS [Suspect]
     Route: 048
  3. BLOPRESS [Suspect]
     Route: 048
  4. DIURETICS [Concomitant]
     Indication: HYPERTENSION
     Route: 065
  5. CALCIUM CHANNEL BLOCKERS [Concomitant]
     Indication: HYPERTENSION
     Route: 065
  6. ACE INHIBITOR NOS [Concomitant]
     Indication: HYPERTENSION
     Route: 048
  7. INSULINS AND ANALOGUES [Concomitant]
     Indication: DIABETES MELLITUS
     Route: 042
  8. BIGUANIDES [Concomitant]
     Indication: DIABETES MELLITUS
     Route: 048
  9. ANTITHROMBOTIC AGENTS [Concomitant]
     Route: 065

REACTIONS (2)
  - CEREBRAL INFARCTION [None]
  - MYOCARDIAL ISCHAEMIA [None]
